FAERS Safety Report 9343765 (Version 2)
Quarter: 2013Q2

REPORT INFORMATION
  Report Type: Spontaneous
  Country: DE (occurrence: None)
  Receive Date: 20130610
  Receipt Date: 20130618
  Transmission Date: 20140414
  Serious: Yes (Hospitalization)
  Sender: FDA-Public Use
  Company Number: AUR-APL-2013-04647

PATIENT
  Age: 76 Year
  Sex: Female

DRUGS (5)
  1. RAMIPRIL (RAMIPRIL) [Suspect]
     Indication: CARDIOMYOPATHY
     Dosage: 5 MG (5 MG, 1 IN 1 D), ORAL STOPPED
     Route: 048
  2. PRADAXA [Suspect]
     Indication: ATRIAL FIBRILLATION
     Dosage: 220 MG (110 MG, 2 IN 1 D), ORAL?
     Route: 048
     Dates: start: 201301, end: 20130219
  3. SPIRONOLACTONE (SPIRONOLACTONE) [Suspect]
     Dosage: 25 MG (25 MG, 1 IN 1 D), ORAL STOPPED
     Route: 048
     Dates: start: 201210
  4. TORASEMIDE (TORASEMIDE) [Concomitant]
  5. ACETYLSALICYLIC ACID (ACETYLSALICYLIC ACID) [Concomitant]

REACTIONS (3)
  - Blood creatinine increased [None]
  - Haemoglobin decreased [None]
  - International normalised ratio increased [None]
